FAERS Safety Report 6802649-5 (Version None)
Quarter: 2010Q2

REPORT INFORMATION
  Report Type: 
  Country: None (occurrence: None)
  Receive Date: 20100628
  Receipt Date: 20100621
  Transmission Date: 20101027
  Serious: Yes (Death, Hospitalization)
  Sender: FDA-Public Use
  Company Number: PHHO2010US09519

PATIENT
  Sex: Male

DRUGS (11)
  1. AFINITOR [Suspect]
     Indication: PANCREATIC CARCINOMA METASTATIC
     Dosage: 10 MG, QD
     Route: 048
     Dates: start: 20091126
  2. TEMOZOLOMIDE [Suspect]
     Indication: PANCREATIC CARCINOMA METASTATIC
     Dosage: 150 MG/M2 Q OTHER WK
     Route: 048
     Dates: start: 20090626
  3. ATIVAN [Concomitant]
  4. BACTRIM [Concomitant]
  5. COMPAZINE [Concomitant]
  6. GELCLAIR [Concomitant]
  7. IMODIUM [Concomitant]
  8. LASIX [Concomitant]
  9. METFORMIN HCL [Concomitant]
  10. MORPHINE [Concomitant]
  11. NICOTINE [Concomitant]

REACTIONS (4)
  - DEATH [None]
  - HYPOGLYCAEMIA [None]
  - HYPOTENSION [None]
  - NEUTROPENIA [None]
